FAERS Safety Report 20892893 (Version 2)
Quarter: 2022Q2

REPORT INFORMATION
  Report Type: Spontaneous
  Country: US (occurrence: US)
  Receive Date: 20220531
  Receipt Date: 20220614
  Transmission Date: 20220721
  Serious: Yes (Hospitalization)
  Sender: FDA-Public Use
  Company Number: US-BRISTOL-MYERS SQUIBB COMPANY-2022-047147

PATIENT
  Age: 78 Year
  Sex: Female
  Weight: 63.50 kg

DRUGS (1)
  1. REVLIMID [Suspect]
     Active Substance: LENALIDOMIDE
     Indication: Hypergammaglobulinaemia benign monoclonal
     Dosage: 3W, 1W OFF
     Route: 048
     Dates: start: 20220501, end: 20220602

REACTIONS (2)
  - Adverse event [Unknown]
  - Off label use [Unknown]
